FAERS Safety Report 7204990-3 (Version None)
Quarter: 2010Q4

REPORT INFORMATION
  Report Type: 
  Country: None (occurrence: None)
  Receive Date: 20101230
  Receipt Date: 20101228
  Transmission Date: 20110411
  Serious: Yes (Hospitalization)
  Sender: FDA-Public Use
  Company Number: IT-PFIZER INC-2010180705

PATIENT
  Age: 82 Year
  Sex: Female

DRUGS (2)
  1. MEDROL [Suspect]
     Indication: DERMATITIS ALLERGIC
     Dosage: 16 MG, 1X/DAY
     Route: 048
     Dates: start: 20101004, end: 20101010
  2. MEDROL [Suspect]
     Dosage: 8 MG, 1X/DAY
     Route: 048
     Dates: start: 20101011, end: 20101017

REACTIONS (1)
  - HYPERGLYCAEMIA [None]
